FAERS Safety Report 9782073 (Version 3)
Quarter: 2014Q1

REPORT INFORMATION
  Report Type: Spontaneous
  Country: LT (occurrence: LT)
  Receive Date: 20131226
  Receipt Date: 20140212
  Transmission Date: 20141002
  Serious: Yes (Other)
  Sender: FDA-Public Use
  Company Number: LT-ROCHE-1304870

PATIENT
  Age: 69 Year
  Sex: Female
  Weight: 68 kg

DRUGS (5)
  1. BONVIVA [Suspect]
     Indication: OSTEOPOROSIS
     Dosage: 3 MG/3 ML
     Route: 042
     Dates: start: 20130715, end: 20130715
  2. BONVIVA [Suspect]
     Dosage: 3 MG/3 ML
     Route: 042
     Dates: start: 20131013, end: 20131013
  3. VERAPAMIL [Concomitant]
     Indication: HYPERTENSION
  4. VEROSPIRON [Concomitant]
     Indication: HYPERTENSION
  5. DENOSUMAB [Concomitant]

REACTIONS (6)
  - Arthralgia [Not Recovered/Not Resolved]
  - Abdominal pain upper [Not Recovered/Not Resolved]
  - Diarrhoea [Not Recovered/Not Resolved]
  - Nausea [Not Recovered/Not Resolved]
  - Cystitis [Unknown]
  - Gastritis erosive [Unknown]
